FAERS Safety Report 4935177-2 (Version None)
Quarter: 2006Q1

REPORT INFORMATION
  Report Type: 
  Country: None (occurrence: None)
  Receive Date: 20060303
  Receipt Date: 20060303
  Transmission Date: 20060701
  Serious: Yes (Hospitalization)
  Sender: FDA-Public Use
  Company Number: None

PATIENT
  Sex: Female
  Weight: 68 kg

DRUGS (4)
  1. IRINOTECAN HCL [Suspect]
     Indication: GLIOBLASTOMA MULTIFORME
     Dosage: 500 MG
     Dates: start: 20060201, end: 20060215
  2. IRINOTECAN HCL [Suspect]
     Indication: GLIOBLASTOMA MULTIFORME
     Dosage: 500 MG
     Dates: start: 20060228
  3. TEMOZOLOMIDE [Suspect]
     Dosage: 1250 MG
     Dates: start: 20060201, end: 20060205
  4. TEMOZOLOMIDE [Suspect]
     Dosage: 1250 MG
     Dates: start: 20060228

REACTIONS (3)
  - CHEST X-RAY ABNORMAL [None]
  - INFECTION [None]
  - PNEUMOCYSTIS JIROVECI PNEUMONIA [None]
